APPROVED DRUG PRODUCT: HEPARIN SODIUM 20,000 UNITS IN DEXTROSE 5% IN PLASTIC CONTAINER
Active Ingredient: HEPARIN SODIUM
Strength: 4,000 UNITS/100ML
Dosage Form/Route: INJECTABLE;INJECTION
Application: N019805 | Product #001
Applicant: HOSPIRA INC
Approved: Jan 25, 1989 | RLD: No | RS: No | Type: DISCN